FAERS Safety Report 9216475 (Version 2)
Quarter: 2013Q1

REPORT INFORMATION
  Report Type: Spontaneous
  Country: US (occurrence: None)
  Receive Date: 20130307
  Receipt Date: 20130313
  Transmission Date: 20140127
  Serious: Yes (Death)
  Sender: FDA-Public Use
  Company Number: 2013-0374

PATIENT
  Age: 79 Year
  Sex: Female

DRUGS (1)
  1. KYPROLIS (CARFILZOMIB)(INJECTION FOR INFUSION)(CARFILZOMIB) [Suspect]
     Indication: PLASMA CELL MYELOMA
     Route: 042
     Dates: start: 20121218, end: 201301

REACTIONS (3)
  - Death [None]
  - Pain [None]
  - Plasma cell myeloma [None]
